FAERS Safety Report 7546300-8 (Version None)
Quarter: 2011Q2

REPORT INFORMATION
  Report Type: 
  Country: None (occurrence: None)
  Receive Date: 20110614
  Receipt Date: 20040423
  Transmission Date: 20111010
  Serious: Yes (Hospitalization)
  Sender: FDA-Public Use
  Company Number: PHFR2004GB01362

PATIENT

DRUGS (8)
  1. ENALAPRIL MALEATE [Concomitant]
  2. LACTULOSE [Concomitant]
  3. CLOZAPINE [Suspect]
     Indication: SCHIZOPHRENIA
     Route: 048
     Dates: start: 20040119
  4. FERROUS SULFATE TAB [Concomitant]
     Dosage: 200 MG, BID
  5. CLOZAPINE [Suspect]
     Dosage: 200MG/DAY
     Dates: start: 20040304
  6. DEPAKOTE [Concomitant]
  7. AMIODARONE HCL [Concomitant]
     Route: 042
  8. CAPTOPRIL [Concomitant]
     Dosage: 12.5 MG, BID

REACTIONS (12)
  - PYREXIA [None]
  - SLEEP DISORDER [None]
  - NEUTROPHIL COUNT INCREASED [None]
  - ATRIAL FIBRILLATION [None]
  - DYSPNOEA [None]
  - WHITE BLOOD CELL COUNT INCREASED [None]
  - CHRONIC OBSTRUCTIVE PULMONARY DISEASE [None]
  - CARDIAC FAILURE CONGESTIVE [None]
  - ALTERED STATE OF CONSCIOUSNESS [None]
  - LOWER RESPIRATORY TRACT INFECTION [None]
  - MALAISE [None]
  - PNEUMONIA [None]
